FAERS Safety Report 24048158 (Version 4)
Quarter: 2025Q1

REPORT INFORMATION
  Report Type: Spontaneous
  Country: US (occurrence: US)
  Receive Date: 20240703
  Receipt Date: 20250311
  Transmission Date: 20250409
  Serious: Yes (Death)
  Sender: ROCHE
  Company Number: US-ROCHE-10000008173

PATIENT
  Sex: Female
  Weight: 95.25 kg

DRUGS (14)
  1. CATHFLO ACTIVASE [Suspect]
     Active Substance: ALTEPLASE
     Indication: Product used for unknown indication
     Route: 065
  2. METFORMIN [Concomitant]
     Active Substance: METFORMIN HYDROCHLORIDE
     Dosage: TAKE 2 500 MG TABLETS
     Route: 048
  3. CARVEDILOL [Concomitant]
     Active Substance: CARVEDILOL
     Dosage: TAKE WITH FOOD
     Route: 065
  4. FERROUS SULFATE [Concomitant]
     Active Substance: FERROUS SULFATE
     Route: 048
  5. LAMOTRIGINE [Concomitant]
     Active Substance: LAMOTRIGINE
     Route: 048
  6. QUETIAPINE FUMARATE [Concomitant]
     Active Substance: QUETIAPINE FUMARATE
     Dosage: AT BEDTIME FOR 90 DAYS
     Route: 048
  7. FUROSEMIDE [Concomitant]
     Active Substance: FUROSEMIDE
     Route: 048
  8. LEVOFLOXACIN [Concomitant]
     Active Substance: LEVOFLOXACIN
     Dosage: FOR 10 DAYS
     Route: 048
  9. SERTRALINE HYDROCHLORIDE [Concomitant]
     Active Substance: SERTRALINE HYDROCHLORIDE
     Dosage: FOR 30 DAYS
     Route: 048
  10. SPIRONOLACTONE [Concomitant]
     Active Substance: SPIRONOLACTONE
     Route: 048
  11. LEVOTHYROXINE SODIUM [Concomitant]
     Active Substance: LEVOTHYROXINE SODIUM
     Dosage: IN THE MORNING ON A EMPTY STOMACH
     Route: 048
  12. TRAZODONE [Concomitant]
     Active Substance: TRAZODONE HYDROCHLORIDE
     Dosage: AT BEDTIME AS NEEDED FOR 90 DAYS
     Route: 048
  13. ATORVASTATIN [Concomitant]
     Active Substance: ATORVASTATIN
     Route: 065
  14. TRAMADOL [Concomitant]
     Active Substance: TRAMADOL
     Indication: Pain
     Dosage: AS NEEDED FOR PAIN
     Route: 065

REACTIONS (3)
  - Infection [Fatal]
  - Cerebrovascular accident [Fatal]
  - Product contamination [Unknown]
